FAERS Safety Report 19149297 (Version 1)
Quarter: 2021Q2

REPORT INFORMATION
  Report Type: Spontaneous
  Country: CA (occurrence: AU)
  Receive Date: 20210416
  Receipt Date: 20210416
  Transmission Date: 20210717
  Serious: Yes (Hospitalization, Other)
  Sender: FDA-Public Use
  Company Number: CA-TAKEDA-2021TUS023450

PATIENT
  Sex: Male

DRUGS (3)
  1. ALUNBRIG [Suspect]
     Active Substance: BRIGATINIB
     Indication: BONE CANCER METASTATIC
  2. ALUNBRIG [Suspect]
     Active Substance: BRIGATINIB
     Indication: RENAL CANCER METASTATIC
     Dosage: UNK
     Route: 065
  3. ALUNBRIG [Suspect]
     Active Substance: BRIGATINIB
     Indication: LUNG CANCER METASTATIC

REACTIONS (6)
  - Haemoglobin decreased [Unknown]
  - Bone cancer metastatic [Unknown]
  - Drug ineffective [Unknown]
  - Pain [Unknown]
  - Lung cancer metastatic [Unknown]
  - Renal cancer metastatic [Unknown]
